FAERS Safety Report 16036381 (Version 1)
Quarter: 2019Q1

REPORT INFORMATION
  Report Type: Spontaneous
  Country: US (occurrence: US)
  Receive Date: 20190305
  Receipt Date: 20190305
  Transmission Date: 20190418
  Serious: No
  Sender: FDA-Public Use
  Company Number: IT-ALLERGAN-1845135US

PATIENT
  Sex: Female

DRUGS (2)
  1. ESTRACE [Suspect]
     Active Substance: ESTRADIOL
     Indication: VULVOVAGINAL DRYNESS
     Dosage: ONE DOSE
     Route: 067
     Dates: start: 20180911
  2. HORMONE THERAPY [Concomitant]
     Active Substance: UNSPECIFIED INGREDIENT
     Indication: MENOPAUSE
     Route: 048

REACTIONS (4)
  - Application site pain [Unknown]
  - Device difficult to use [Unknown]
  - Product use issue [Unknown]
  - Wrong technique in product usage process [Unknown]
